FAERS Safety Report 17663351 (Version 1)
Quarter: 2020Q2

REPORT INFORMATION
  Report Type: Spontaneous
  Country: CZ (occurrence: CZ)
  Receive Date: 20200413
  Receipt Date: 20200413
  Transmission Date: 20200713
  Serious: Yes (Hospitalization)
  Sender: FDA-Public Use
  Company Number: CZ-TAKEDA-2020TUS018138

PATIENT
  Age: 23 Year
  Sex: Male

DRUGS (4)
  1. BRINTELLIX [Suspect]
     Active Substance: VORTIOXETINE HYDROBROMIDE
     Indication: SOMATIC SYMPTOM DISORDER
  2. BRINTELLIX [Suspect]
     Active Substance: VORTIOXETINE HYDROBROMIDE
     Indication: ADJUSTMENT DISORDER
  3. BRINTELLIX [Suspect]
     Active Substance: VORTIOXETINE HYDROBROMIDE
     Indication: AVOIDANT PERSONALITY DISORDER
     Dosage: 5 MILLIGRAM, QD
     Route: 065
  4. BRINTELLIX [Suspect]
     Active Substance: VORTIOXETINE HYDROBROMIDE
     Indication: GENERALISED ANXIETY DISORDER

REACTIONS (10)
  - Product use in unapproved indication [Unknown]
  - Feeling abnormal [Unknown]
  - Visual impairment [Unknown]
  - Panic disorder [Unknown]
  - Tremor [Unknown]
  - Malaise [Unknown]
  - Decreased activity [Unknown]
  - Attention deficit hyperactivity disorder [Unknown]
  - Abdominal pain upper [Unknown]
  - Vomiting [Unknown]
